FAERS Safety Report 5331607-5 (Version None)
Quarter: 2007Q2

REPORT INFORMATION
  Report Type: 
  Country: None (occurrence: None)
  Receive Date: 20070522
  Receipt Date: 20070510
  Transmission Date: 20071010
  Serious: Yes (Other)
  Sender: FDA-Public Use
  Company Number: US-PFIZER INC-2007038515

PATIENT
  Sex: Male
  Weight: 106.6 kg

DRUGS (1)
  1. CHANTIX [Suspect]
     Indication: SMOKING CESSATION THERAPY
     Route: 048
     Dates: start: 20070505, end: 20070509

REACTIONS (6)
  - CONSTIPATION [None]
  - FLATULENCE [None]
  - HEADACHE [None]
  - NAUSEA [None]
  - SWOLLEN TONGUE [None]
  - VOMITING [None]
